FAERS Safety Report 10028370 (Version 2)
Quarter: 2014Q1

REPORT INFORMATION
  Report Type: Report from Study
  Country: DE (occurrence: DE)
  Receive Date: 20140321
  Receipt Date: 20140328
  Transmission Date: 20141002
  Serious: Yes (Hospitalization)
  Sender: FDA-Public Use
  Company Number: DE-BAYER-2014-041520

PATIENT
  Sex: Female
  Weight: 85 kg

DRUGS (2)
  1. SORAFENIB (RAF KINASE INHIBITOR) [Suspect]
     Indication: HEPATOCELLULAR CARCINOMA
     Dosage: DAILY DOSE 800 MG
     Route: 048
     Dates: start: 20140302, end: 20140311
  2. DOXORUBICIN [Suspect]
     Indication: HEPATOCELLULAR CARCINOMA
     Dosage: DAILY DOSE 59.7 MG
     Route: 042
     Dates: start: 20140228, end: 20140228

REACTIONS (1)
  - General physical health deterioration [Recovered/Resolved]
